FAERS Safety Report 12805050 (Version 1)
Quarter: 2016Q4

REPORT INFORMATION
  Report Type: Report from Study
  Country: US (occurrence: US)
  Receive Date: 20161004
  Receipt Date: 20161004
  Transmission Date: 20170207
  Serious: Yes (Hospitalization, Other)
  Sender: FDA-Public Use
  Company Number: US-ROCHE-783048

PATIENT
  Age: 44 Year
  Sex: Female
  Weight: 57 kg

DRUGS (27)
  1. BEVACIZUMAB [Suspect]
     Active Substance: BEVACIZUMAB
     Dosage: COURSE 5
     Route: 042
  2. BEVACIZUMAB [Suspect]
     Active Substance: BEVACIZUMAB
     Dosage: COURSE 13
     Route: 042
  3. TEMSIROLIMUS [Suspect]
     Active Substance: TEMSIROLIMUS
     Dosage: COURSE 3
     Route: 042
  4. TEMSIROLIMUS [Suspect]
     Active Substance: TEMSIROLIMUS
     Dosage: COURSE 10
     Route: 042
  5. TEMSIROLIMUS [Suspect]
     Active Substance: TEMSIROLIMUS
     Dosage: COURSE 13
     Route: 042
  6. BEVACIZUMAB [Suspect]
     Active Substance: BEVACIZUMAB
     Dosage: COURSE 6
     Route: 042
  7. BEVACIZUMAB [Suspect]
     Active Substance: BEVACIZUMAB
     Dosage: COURSE 8
     Route: 042
  8. TEMSIROLIMUS [Suspect]
     Active Substance: TEMSIROLIMUS
     Dosage: COURSE 4
     Route: 042
  9. TEMSIROLIMUS [Suspect]
     Active Substance: TEMSIROLIMUS
     Dosage: COURSE 5
     Route: 042
  10. TEMSIROLIMUS [Suspect]
     Active Substance: TEMSIROLIMUS
     Dosage: COURSE 8
     Route: 042
  11. BEVACIZUMAB [Suspect]
     Active Substance: BEVACIZUMAB
     Dosage: COURSE 7
     Route: 042
  12. TEMSIROLIMUS [Suspect]
     Active Substance: TEMSIROLIMUS
     Indication: MALIGNANT NEOPLASM OF ISLETS OF LANGERHANS
     Dosage: DOSE: 25MG IV ON DAYS 1,8, 15, 22?DOSE: 75 MG
     Route: 042
  13. BEVACIZUMAB [Suspect]
     Active Substance: BEVACIZUMAB
     Dosage: COURSE 4
     Route: 042
  14. BEVACIZUMAB [Suspect]
     Active Substance: BEVACIZUMAB
     Dosage: COURSE 10
     Route: 042
  15. BEVACIZUMAB [Suspect]
     Active Substance: BEVACIZUMAB
     Dosage: COURSE 11
     Route: 042
  16. TEMSIROLIMUS [Suspect]
     Active Substance: TEMSIROLIMUS
     Dosage: COURSE 2
     Route: 042
  17. BEVACIZUMAB [Suspect]
     Active Substance: BEVACIZUMAB
     Dosage: COURSE 9
     Route: 042
  18. TEMSIROLIMUS [Suspect]
     Active Substance: TEMSIROLIMUS
     Dosage: COURSE 9
     Route: 042
  19. TEMSIROLIMUS [Suspect]
     Active Substance: TEMSIROLIMUS
     Dosage: COURSE 11
     Route: 042
  20. BEVACIZUMAB [Suspect]
     Active Substance: BEVACIZUMAB
     Dosage: COURSE 2
     Route: 042
  21. BEVACIZUMAB [Suspect]
     Active Substance: BEVACIZUMAB
     Dosage: COURSE 12
     Route: 042
  22. BEVACIZUMAB [Suspect]
     Active Substance: BEVACIZUMAB
     Dosage: COURSE 14
     Route: 042
  23. TEMSIROLIMUS [Suspect]
     Active Substance: TEMSIROLIMUS
     Dosage: COURSE 12
     Route: 042
  24. TEMSIROLIMUS [Suspect]
     Active Substance: TEMSIROLIMUS
     Dosage: COURSE 14
     Route: 042
  25. BEVACIZUMAB [Suspect]
     Active Substance: BEVACIZUMAB
     Indication: MALIGNANT NEOPLASM OF ISLETS OF LANGERHANS
     Dosage: DOSE: 10MG/KG IV OVER 30-90 MIN ON DAYS 1 AND 15?DOSE: 522 MG
     Route: 042
  26. TEMSIROLIMUS [Suspect]
     Active Substance: TEMSIROLIMUS
     Dosage: COURSE 6
     Route: 042
  27. TEMSIROLIMUS [Suspect]
     Active Substance: TEMSIROLIMUS
     Dosage: COURSE 7
     Route: 042

REACTIONS (6)
  - Alanine aminotransferase increased [Unknown]
  - Aspartate aminotransferase increased [Unknown]
  - Platelet count decreased [Unknown]
  - Lung infection [Recovered/Resolved]
  - Abdominal pain [Unknown]
  - Back pain [Unknown]

NARRATIVE: CASE EVENT DATE: 20101101
